FAERS Safety Report 6079443-9 (Version None)
Quarter: 2009Q1

REPORT INFORMATION
  Report Type: 
  Country: None (occurrence: None)
  Receive Date: 20090216
  Receipt Date: 20090205
  Transmission Date: 20090719
  Serious: Yes (Other)
  Sender: FDA-Public Use
  Company Number: PHHY2009CA04276

PATIENT
  Sex: Female

DRUGS (3)
  1. DIOVAN [Suspect]
     Route: 048
  2. DIOVAN [Suspect]
     Dosage: 320 MG
     Route: 048
  3. DIURETICS [Concomitant]
     Dosage: 20 MG

REACTIONS (3)
  - FALL [None]
  - INTERNAL FIXATION OF FRACTURE [None]
  - LOWER LIMB FRACTURE [None]
